FAERS Safety Report 5153897-4 (Version None)
Quarter: 2006Q4

REPORT INFORMATION
  Report Type: 
  Country: None (occurrence: None)
  Receive Date: 20061120
  Receipt Date: 20061004
  Transmission Date: 20070319
  Serious: Yes (Death, Other)
  Sender: FDA-Public Use
  Company Number: US-PURDUE-USA_2006_0025349

PATIENT
  Age: 23 Year
  Sex: Male
  Weight: 104 kg

DRUGS (3)
  1. OXYCODONE HYDROCHLORIDE [Suspect]
     Indication: DRUG ABUSER
     Dosage: UNK, UNK
  2. XANAX [Suspect]
     Indication: DRUG ABUSER
     Dosage: UNK, UNK
  3. MARIJUANA [Suspect]
     Indication: DRUG ABUSER
     Dosage: UNK, UNK

REACTIONS (12)
  - ACCIDENTAL DEATH [None]
  - BRAIN OEDEMA [None]
  - EXCORIATION [None]
  - FALL [None]
  - HAEMATEMESIS [None]
  - MULTI-ORGAN DISORDER [None]
  - MULTIPLE DRUG OVERDOSE [None]
  - OVERDOSE [None]
  - PULSE ABSENT [None]
  - RESPIRATORY ARREST [None]
  - SUBSTANCE ABUSE [None]
  - UNRESPONSIVE TO STIMULI [None]
